FAERS Safety Report 11589826 (Version 1)
Quarter: 2015Q4

REPORT INFORMATION
  Report Type: Spontaneous
  Country: US (occurrence: US)
  Receive Date: 20151002
  Receipt Date: 20151002
  Transmission Date: 20160304
  Serious: No
  Sender: FDA-Public Use
  Company Number: US-SHIRE-US201512008

PATIENT
  Age: 15 Year
  Sex: Male

DRUGS (3)
  1. VITAMINS NOS [Concomitant]
     Active Substance: VITAMINS
     Indication: PRODUCT USED FOR UNKNOWN INDICATION
     Dosage: UNK, 1X/DAY:QD
     Route: 048
  2. VYVANSE [Concomitant]
     Active Substance: LISDEXAMFETAMINE DIMESYLATE
     Indication: ATTENTION DEFICIT/HYPERACTIVITY DISORDER
     Dosage: 50 MG, 1X/DAY:QD
     Route: 050
  3. INTUNIV [Suspect]
     Active Substance: GUANFACINE HYDROCHLORIDE
     Indication: AMNESIA
     Dosage: 3 MG, 1X/DAY:QD
     Route: 048
     Dates: start: 201508, end: 201508

REACTIONS (3)
  - Drug dose titration not performed [Recovered/Resolved]
  - Drug ineffective [Recovered/Resolved]
  - Product use issue [Recovered/Resolved]

NARRATIVE: CASE EVENT DATE: 201508
